FAERS Safety Report 12754184 (Version 2)
Quarter: 2016Q4

REPORT INFORMATION
  Report Type: Spontaneous
  Country: DE (occurrence: DE)
  Receive Date: 20160916
  Receipt Date: 20161028
  Transmission Date: 20170207
  Serious: Yes (Other)
  Sender: FDA-Public Use
  Company Number: DE-AMGEN-DEUSP2016122481

PATIENT
  Age: 56 Year
  Sex: Male

DRUGS (2)
  1. ARANESP [Suspect]
     Active Substance: DARBEPOETIN ALFA
     Indication: PRODUCT USED FOR UNKNOWN INDICATION
     Dosage: 30 MUG, UNK
     Route: 065
     Dates: start: 201508
  2. ARANESP [Suspect]
     Active Substance: DARBEPOETIN ALFA
     Dosage: 60 MUG, UNK
     Route: 065
     Dates: start: 201608

REACTIONS (3)
  - Injection site pain [Recovered/Resolved]
  - Injection site paraesthesia [Recovered/Resolved]
  - Injection site reaction [Recovered/Resolved]

NARRATIVE: CASE EVENT DATE: 201608
